FAERS Safety Report 21800861 (Version 3)
Quarter: 2023Q1

REPORT INFORMATION
  Report Type: Report from Study
  Country: DE (occurrence: DE)
  Receive Date: 20221230
  Receipt Date: 20230113
  Transmission Date: 20230418
  Serious: Yes (Hospitalization)
  Sender: FDA-Public Use
  Company Number: DE-VELOXIS PHARMACEUTICALS, INC.-2022-VEL-00827

PATIENT
  Age: 60 Year
  Sex: Male
  Weight: 70 kg

DRUGS (3)
  1. ENVARSUS XR [Suspect]
     Active Substance: TACROLIMUS
     Indication: Liver transplant
     Dosage: 1.5 MILLIGRAM, QD
     Route: 048
     Dates: start: 20221217
  2. CERTICAN [Concomitant]
     Active Substance: EVEROLIMUS
     Indication: Immunosuppression
     Dosage: 1 MILLIGRAM, BID
     Dates: start: 202010
  3. URSODIOL [Concomitant]
     Active Substance: URSODIOL
     Indication: Prophylaxis
     Dosage: 500 MILLIGRAM, BID
     Dates: start: 202010

REACTIONS (1)
  - Epiploic appendagitis [Recovered/Resolved]

NARRATIVE: CASE EVENT DATE: 20221219
